FAERS Safety Report 4876932-7 (Version None)
Quarter: 2006Q1

REPORT INFORMATION
  Report Type: 
  Country: None (occurrence: None)
  Receive Date: 20060110
  Receipt Date: 20051229
  Transmission Date: 20060701
  Serious: Yes (Other)
  Sender: FDA-Public Use
  Company Number: US-ROCHE-430520

PATIENT
  Age: 51 Year
  Sex: Female

DRUGS (2)
  1. PEGASYS [Suspect]
     Route: 058
     Dates: start: 20050305
  2. COPEGUS [Suspect]
     Route: 048
     Dates: start: 20050305

REACTIONS (4)
  - ALOPECIA [None]
  - ASCITES [None]
  - FATIGUE [None]
  - STOMATITIS [None]
